FAERS Safety Report 8574878-4 (Version None)
Quarter: 2012Q3

REPORT INFORMATION
  Report Type: 
  Country: None (occurrence: None)
  Receive Date: 20120807
  Receipt Date: 20120730
  Transmission Date: 20120928
  Serious: Yes (Other)
  Sender: FDA-Public Use
  Company Number: JP-ELI_LILLY_AND_COMPANY-JP201205009345

PATIENT
  Sex: Male
  Weight: 79 kg

DRUGS (6)
  1. CISPLATIN [Concomitant]
     Indication: LUNG ADENOCARCINOMA STAGE IV
     Dosage: 135 MG, OTHER
     Route: 042
     Dates: start: 20120502
  2. POTASSIUM CHLORIDE [Concomitant]
     Indication: PROPHYLAXIS
     Dosage: UNK
     Route: 042
     Dates: start: 20120503, end: 20120504
  3. ALIMTA [Suspect]
     Indication: LUNG ADENOCARCINOMA STAGE IV
     Dosage: 930 MG, OTHER
     Route: 042
     Dates: start: 20120502
  4. DEXAMETHASONE SODIUM PHOSPHATE [Concomitant]
     Indication: PROPHYLAXIS OF NAUSEA AND VOMITING
     Dosage: UNK
     Route: 042
     Dates: start: 20120502, end: 20120502
  5. DEXAMETHASONE SODIUM PHOSPHATE [Concomitant]
     Dosage: UNK
     Route: 042
     Dates: start: 20120503, end: 20120504
  6. GRANISETRON [Concomitant]
     Indication: PROPHYLAXIS OF NAUSEA AND VOMITING
     Dosage: UNK
     Route: 042
     Dates: start: 20120502, end: 20120502

REACTIONS (2)
  - DECREASED APPETITE [None]
  - GASTRODUODENAL ULCER [None]
